FAERS Safety Report 4600142-1 (Version None)
Quarter: 2005Q1

REPORT INFORMATION
  Report Type: 
  Country: None (occurrence: None)
  Receive Date: 20050307
  Receipt Date: 20050210
  Transmission Date: 20050727
  Serious: Yes (Life-Threatening, Hospitalization, Other)
  Sender: FDA-Public Use
  Company Number: NL-BRISTOL-MYERS SQUIBB COMPANY-12856647

PATIENT
  Age: 55 Year
  Sex: Male

DRUGS (7)
  1. ABILIFY [Suspect]
     Indication: SCHIZOPHRENIA
     Dates: start: 20040329
  2. PROMETHAZINE [Suspect]
  3. SINEMET [Concomitant]
     Indication: PARKINSONISM
     Dosage: DD 125 MG IVM
     Route: 042
  4. NORMISON [Concomitant]
     Indication: INSOMNIA
     Dosage: 10 MG IVM; DD 20 MG NIGHT
     Route: 042
  5. ACENOCOUMAROL [Concomitant]
  6. FRAXIPARINE [Concomitant]
  7. LORMETAZEPAM [Concomitant]

REACTIONS (4)
  - ANXIETY [None]
  - DRUG INEFFECTIVE [None]
  - INSOMNIA [None]
  - SUICIDE ATTEMPT [None]
